FAERS Safety Report 4535668-2 (Version None)
Quarter: 2004Q4

REPORT INFORMATION
  Report Type: 
  Country: None (occurrence: None)
  Receive Date: 20041223
  Receipt Date: 20031107
  Transmission Date: 20050328
  Serious: No
  Sender: FDA-Public Use
  Company Number: US-GLAXOSMITHKLINE-A0438841A

PATIENT
  Age: 78 Year
  Sex: Male

DRUGS (6)
  1. FLONASE [Suspect]
     Dosage: 1SPR TWICE PER DAY
     Route: 045
  2. VASOCONSTRICTOR [Concomitant]
  3. ENALAPRIL [Concomitant]
  4. DOXAZOSIN [Concomitant]
  5. VIOXX [Concomitant]
  6. ASPIRIN [Concomitant]

REACTIONS (1)
  - DYSPNOEA [None]
